FAERS Safety Report 15955867 (Version 1)
Quarter: 2019Q1

REPORT INFORMATION
  Report Type: Spontaneous
  Country: US (occurrence: US)
  Receive Date: 20190212
  Receipt Date: 20190212
  Transmission Date: 20190417
  Serious: Yes (Other)
  Sender: FDA-Public Use
  Company Number: None

PATIENT
  Age: 47 Year
  Sex: Female
  Weight: 81.9 kg

DRUGS (3)
  1. REPATHA [Suspect]
     Active Substance: EVOLOCUMAB
     Indication: BLOOD CHOLESTEROL
     Dosage: ?          QUANTITY:1 INJECTION(S);OTHER FREQUENCY:INJECT EVERY 2 WEE;?
     Route: 030
     Dates: start: 20190205, end: 20190212
  2. GENERIC ARB [Concomitant]
  3. PROMETRIUM [Concomitant]
     Active Substance: PROGESTERONE

REACTIONS (6)
  - Diarrhoea [None]
  - Vomiting [None]
  - Fatigue [None]
  - Facial paralysis [None]
  - Thyroiditis [None]
  - Pyrexia [None]

NARRATIVE: CASE EVENT DATE: 20190207
